FAERS Safety Report 5523839-8 (Version None)
Quarter: 2007Q4

REPORT INFORMATION
  Report Type: 
  Country: None (occurrence: None)
  Receive Date: 20071121
  Receipt Date: 20071115
  Transmission Date: 20080405
  Serious: Yes (Hospitalization)
  Sender: FDA-Public Use
  Company Number: US-ABBOTT-07P-163-0425016-00

PATIENT
  Sex: Female
  Weight: 51.756 kg

DRUGS (3)
  1. HUMIRA [Suspect]
     Indication: RHEUMATOID ARTHRITIS
     Route: 058
     Dates: start: 20050101, end: 20060101
  2. HUMIRA [Suspect]
     Route: 058
     Dates: start: 20070401
  3. LEFLUNOMIDE [Concomitant]
     Indication: RHEUMATOID ARTHRITIS
     Route: 048

REACTIONS (5)
  - COUGH [None]
  - DIZZINESS [None]
  - LABYRINTHITIS [None]
  - POSTNASAL DRIP [None]
  - RESPIRATORY DISORDER [None]
